FAERS Safety Report 20899923 (Version 1)
Quarter: 2022Q2

REPORT INFORMATION
  Report Type: Report from Study
  Country: CA (occurrence: CA)
  Receive Date: 20220601
  Receipt Date: 20220601
  Transmission Date: 20220721
  Serious: Yes (Other)
  Sender: FDA-Public Use
  Company Number: CA-UCBSA-2022030362

PATIENT
  Sex: Male

DRUGS (1)
  1. LEVETIRACETAM [Suspect]
     Active Substance: LEVETIRACETAM
     Indication: Seizure
     Dosage: 250MG AM AND 500MG HS (TITRATING DOSE)
     Dates: start: 202202

REACTIONS (3)
  - Renal impairment [Unknown]
  - Product use issue [Unknown]
  - Drug titration error [Unknown]
